FAERS Safety Report 5026825-X (Version None)
Quarter: 2006Q2

REPORT INFORMATION
  Report Type: 
  Country: None (occurrence: None)
  Receive Date: 20060608
  Receipt Date: 20060524
  Transmission Date: 20061013
  Serious: Yes (Death)
  Sender: FDA-Public Use
  Company Number: 20060113

PATIENT
  Age: 63 Year
  Sex: Male

DRUGS (5)
  1. VENOFER [Suspect]
     Dates: start: 20060309, end: 20060316
  2. RANITIDINE [Concomitant]
  3. FUROSEMIDE [Concomitant]
  4. ENOXAPARIN SODIUM [Concomitant]
  5. ONDANSETRON HCL [Concomitant]

REACTIONS (8)
  - ACUTE PULMONARY OEDEMA [None]
  - ATRIAL FIBRILLATION [None]
  - ATRIAL FLUTTER [None]
  - CHILLS [None]
  - HYPERHIDROSIS [None]
  - HYPOTENSION [None]
  - POOR PERIPHERAL CIRCULATION [None]
  - TACHYCARDIA [None]
